FAERS Safety Report 23604317 (Version 2)
Quarter: 2024Q1

REPORT INFORMATION
  Report Type: Spontaneous
  Country: US (occurrence: US)
  Receive Date: 20240307
  Receipt Date: 20240320
  Transmission Date: 20240409
  Serious: Yes (Hospitalization, Other)
  Sender: FDA-Public Use
  Company Number: US-HIKMA PHARMACEUTICALS USA INC.-US-H14001-24-01658

PATIENT

DRUGS (16)
  1. DEXAMETHASONE [Suspect]
     Active Substance: DEXAMETHASONE
     Indication: Product used for unknown indication
     Dosage: UNKNOWN
     Route: 065
  2. ELRANATAMAB [Suspect]
     Active Substance: ELRANATAMAB
     Indication: Product used for unknown indication
     Dosage: UNKNOWN
     Route: 065
  3. ALLOPURINOL [Concomitant]
     Active Substance: ALLOPURINOL
     Indication: Gout
     Dosage: UNK
     Route: 048
     Dates: start: 2017
  4. BENADRYL [Concomitant]
     Active Substance: DIPHENHYDRAMINE HYDROCHLORIDE
     Indication: Seasonal allergy
     Dosage: UNKNOWN
     Route: 048
     Dates: start: 2018
  5. CALCIUM MAGNESIUM ZINK [Concomitant]
     Indication: Mineral supplementation
     Dosage: UNKNOWN
     Route: 065
     Dates: start: 2021
  6. CLONAZEPAM [Concomitant]
     Active Substance: CLONAZEPAM
     Indication: Anxiety
     Dosage: UNK
     Route: 048
     Dates: start: 2022
  7. DEXTROAMPHETAMINE SULFATE [Concomitant]
     Active Substance: DEXTROAMPHETAMINE SULFATE
     Indication: Attention deficit hyperactivity disorder
     Dosage: UNKNOWN
     Route: 065
     Dates: start: 2017
  8. FISH OIL [Concomitant]
     Active Substance: FISH OIL
     Indication: Supplementation therapy
     Dosage: UNKNOWN
     Route: 048
     Dates: start: 2016
  9. FLUTICASONE PROPIONATE [Concomitant]
     Active Substance: FLUTICASONE PROPIONATE
     Indication: Seasonal allergy
     Dosage: UNKNOWN
     Route: 045
     Dates: start: 2014
  10. GABAPENTIN [Concomitant]
     Active Substance: GABAPENTIN
     Indication: Neuropathy peripheral
     Dosage: UNKNOWN
     Route: 048
     Dates: start: 2019
  11. MELATONIN [Concomitant]
     Active Substance: MELATONIN
     Indication: Insomnia
     Dosage: UNKNOWN
     Route: 048
     Dates: start: 2014
  12. POTASSIUM CHLORIDE [Concomitant]
     Active Substance: POTASSIUM CHLORIDE
     Indication: Mineral supplementation
     Dosage: UNKNOWN
     Route: 048
     Dates: start: 2021
  13. VITAMIN B12 [Concomitant]
     Active Substance: CYANOCOBALAMIN
     Indication: Vitamin supplementation
     Dosage: UNKNOWN
     Route: 048
     Dates: start: 2022
  14. VITAMIN C [Concomitant]
     Active Substance: ASCORBIC ACID
     Indication: Vitamin supplementation
     Dosage: UNKNOWN
     Route: 048
     Dates: start: 2022
  15. VITAMIN D3 [Concomitant]
     Active Substance: CHOLECALCIFEROL
     Indication: Vitamin supplementation
     Dosage: UNK
     Route: 048
     Dates: start: 2013
  16. WARFARIN SODIUM [Concomitant]
     Active Substance: WARFARIN SODIUM
     Indication: Prophylaxis
     Dosage: UNKNOWN
     Route: 048
     Dates: start: 2013

REACTIONS (5)
  - Parainfluenzae virus infection [Recovered/Resolved]
  - Feeling abnormal [Unknown]
  - Pyrexia [Unknown]
  - Dyspnoea [Unknown]
  - Nasal congestion [Unknown]

NARRATIVE: CASE EVENT DATE: 20240114
